FAERS Safety Report 18420441 (Version 1)
Quarter: 2020Q4

REPORT INFORMATION
  Report Type: Report from Study
  Country: GB (occurrence: GB)
  Receive Date: 20201023
  Receipt Date: 20201023
  Transmission Date: 20210114
  Serious: Yes (Death)
  Sender: FDA-Public Use
  Company Number: GB-BAUSCH-BL-2020-030809

PATIENT
  Age: 56 Year
  Sex: Female

DRUGS (1)
  1. KYNTHEUM (BRODALUMAB) [Suspect]
     Active Substance: BRODALUMAB
     Indication: PSORIASIS
     Dosage: 210MG WEEK 0, 1, 2 AND THEN EVERY TWO
     Route: 058
     Dates: start: 20190701

REACTIONS (1)
  - Death [Fatal]

NARRATIVE: CASE EVENT DATE: 20201013
